FAERS Safety Report 4847530-6 (Version None)
Quarter: 2005Q4

REPORT INFORMATION
  Report Type: 
  Country: None (occurrence: None)
  Receive Date: 20051207
  Receipt Date: 20050801
  Transmission Date: 20060501
  Serious: Yes (Hospitalization)
  Sender: FDA-Public Use
  Company Number: PHHO2005JP12292

PATIENT
  Age: 52 Year
  Sex: Female

DRUGS (4)
  1. LOCHOL [Suspect]
     Indication: HYPERCHOLESTEROLAEMIA
     Dosage: 20 MG, QD
     Route: 048
     Dates: start: 20020201
  2. ESTRADERM [Concomitant]
     Indication: HORMONE REPLACEMENT THERAPY
  3. PANALDINE [Concomitant]
     Indication: ATRIAL FIBRILLATION
  4. DIGOSIN [Concomitant]
     Indication: ATRIAL FIBRILLATION

REACTIONS (1)
  - ATRIAL FIBRILLATION [None]
